FAERS Safety Report 15408309 (Version 1)
Quarter: 2018Q3

REPORT INFORMATION
  Report Type: Report from Study
  Country: US (occurrence: US)
  Receive Date: 20180920
  Receipt Date: 20180920
  Transmission Date: 20181010
  Serious: Yes (Death, Other)
  Sender: FDA-Public Use
  Company Number: US-GILEAD-2018-0363907

PATIENT
  Age: 74 Year
  Sex: Male

DRUGS (1)
  1. RANOLAZINE. [Suspect]
     Active Substance: RANOLAZINE
     Indication: ANGINA PECTORIS
     Dosage: 500 MG, BID
     Route: 048
     Dates: start: 20100824

REACTIONS (8)
  - Ischaemic cardiomyopathy [Fatal]
  - Myocardial infarction [Fatal]
  - Type 2 diabetes mellitus [Fatal]
  - Circulatory collapse [Fatal]
  - Sepsis [Fatal]
  - Cardiac failure congestive [Fatal]
  - Transitional cell carcinoma [Fatal]
  - Renal failure [Fatal]

NARRATIVE: CASE EVENT DATE: 2017
